FAERS Safety Report 11816178 (Version 2)
Quarter: 2015Q4

REPORT INFORMATION
  Report Type: Spontaneous
  Country: US (occurrence: US)
  Receive Date: 20151209
  Receipt Date: 20151221
  Transmission Date: 20160305
  Serious: Yes (Other)
  Sender: FDA-Public Use
  Company Number: US-LUNDBECK-DKLU2007527

PATIENT
  Age: 33 Year
  Sex: Male
  Weight: 93 kg

DRUGS (1)
  1. NORTHERA [Suspect]
     Active Substance: DROXIDOPA
     Indication: PRODUCT USED FOR UNKNOWN INDICATION
     Route: 065
     Dates: start: 201511, end: 20151130

REACTIONS (6)
  - Haematochezia [Unknown]
  - Paraesthesia [Unknown]
  - Heart rate increased [Unknown]
  - Rash pruritic [Unknown]
  - Blood pressure increased [Unknown]
  - Orthostatic hypotension [Unknown]

NARRATIVE: CASE EVENT DATE: 20151130
